FAERS Safety Report 4686669-5 (Version None)
Quarter: 2005Q2

REPORT INFORMATION
  Report Type: 
  Country: None (occurrence: None)
  Receive Date: 20050609
  Receipt Date: 20050527
  Transmission Date: 20051028
  Serious: Yes (Hospitalization)
  Sender: FDA-Public Use
  Company Number: 2005SE03153

PATIENT
  Sex: Male

DRUGS (1)
  1. BLOPRESS [Suspect]
     Route: 048

REACTIONS (1)
  - INTENTIONAL MISUSE [None]
